FAERS Safety Report 9742439 (Version 1)
Quarter: 2013Q4

REPORT INFORMATION
  Report Type: Spontaneous
  Country: IT (occurrence: IT)
  Receive Date: 20131210
  Receipt Date: 20131210
  Transmission Date: 20140711
  Serious: Yes (Other)
  Sender: FDA-Public Use
  Company Number: IT-ELI_LILLY_AND_COMPANY-IT201312000863

PATIENT
  Age: 61 Year
  Sex: Female

DRUGS (2)
  1. HUMALOG LISPRO [Suspect]
     Indication: DIABETES MELLITUS
     Dosage: 36 IU, UNK
     Route: 058
     Dates: start: 20131029, end: 20131104
  2. LANTUS [Suspect]
     Indication: DIABETES MELLITUS
     Dosage: 16 IU, QD
     Route: 058
     Dates: start: 20131029, end: 20131105

REACTIONS (1)
  - Hypokalaemia [Recovering/Resolving]
